FAERS Safety Report 6082592-2 (Version None)
Quarter: 2009Q1

REPORT INFORMATION
  Report Type: 
  Country: None (occurrence: None)
  Receive Date: 20090204
  Receipt Date: 20080522
  Transmission Date: 20090719
  Serious: Yes (Life-Threatening)
  Sender: FDA-Public Use
  Company Number: 274221

PATIENT
  Age: 56 Year
  Sex: Female
  Weight: 97.5 kg

DRUGS (7)
  1. NOVOLOG MIX 70/30 [Suspect]
     Indication: INSULIN-REQUIRING TYPE 2 DIABETES MELLITUS
     Dosage: QD SLIDING SCALE, SUBCUTANEOUS
     Route: 058
     Dates: start: 20020101, end: 20080417
  2. GLUCOPHAGE /00082701/ (METFORMIN) [Concomitant]
  3. CRESTOR [Concomitant]
  4. ACTOS /01460201/ (PIOGLITAZONE) [Concomitant]
  5. MAVIK [Concomitant]
  6. TRICOR /00090101/ (ADENOSINE) [Concomitant]
  7. CYMBALTA [Concomitant]

REACTIONS (4)
  - BLOOD GLUCOSE DECREASED [None]
  - BODY TEMPERATURE DECREASED [None]
  - CONVULSION [None]
  - DEVICE FAILURE [None]
